FAERS Safety Report 6671620-9 (Version None)
Quarter: 2010Q2

REPORT INFORMATION
  Report Type: 
  Country: None (occurrence: None)
  Receive Date: 20100406
  Receipt Date: 20100406
  Transmission Date: 20101027
  Serious: Yes (Life-Threatening)
  Sender: FDA-Public Use
  Company Number: None

PATIENT
  Age: 58 Year
  Sex: Male
  Weight: 85.3 kg

DRUGS (2)
  1. CIPROFLOXACIN [Suspect]
     Indication: INFECTION PROPHYLAXIS
     Dosage: 50- MG BID PO
     Route: 048
     Dates: start: 20100217, end: 20100217
  2. PROPRANOLOL [Suspect]
     Indication: PORTAL HYPERTENSION
     Dosage: 10 MG TID PO
     Route: 048
     Dates: start: 20100216, end: 20100217

REACTIONS (3)
  - CARDIO-RESPIRATORY ARREST [None]
  - ELECTROCARDIOGRAM QT PROLONGED [None]
  - TORSADE DE POINTES [None]
